FAERS Safety Report 17890393 (Version 2)
Quarter: 2022Q1

REPORT INFORMATION
  Report Type: Other
  Country: CA (occurrence: CA)
  Receive Date: 20200612
  Receipt Date: 20220118
  Transmission Date: 20220423
  Serious: Yes (Hospitalization, Other)
  Sender: FDA-Public Use
  Company Number: CA-GLENMARK PHARMACEUTICALS-2020GMK048085

PATIENT

DRUGS (26)
  1. GABAPENTIN [Suspect]
     Active Substance: GABAPENTIN
     Indication: Product used for unknown indication
     Dosage: UNK
     Route: 065
  2. ASPIRIN [Suspect]
     Active Substance: ASPIRIN
     Indication: Product used for unknown indication
     Dosage: UNK
     Route: 065
  3. ACTEMRA [Suspect]
     Active Substance: TOCILIZUMAB
     Indication: Rheumatoid arthritis
     Dosage: 162 MILLIGRAM, 1 EVERY 2 WEEKS (SOLUTION FOR INJECTION IN PRE-FILLED SYRINGE)
     Route: 058
  4. ACTEMRA [Suspect]
     Active Substance: TOCILIZUMAB
     Indication: Rheumatoid arthritis
     Dosage: 800 MILLIGRAM, 1 EVERY 4 WEEKS
     Route: 042
  5. ACTEMRA [Suspect]
     Active Substance: TOCILIZUMAB
     Indication: Rheumatoid arthritis
     Dosage: UNK
     Route: 042
  6. POLYETHYLENE GLYCOL 3350 [Suspect]
     Active Substance: POLYETHYLENE GLYCOL 3350
     Indication: Product used for unknown indication
     Dosage: UNK
     Route: 065
  7. POLYETHYLENE GLYCOL 3350 [Suspect]
     Active Substance: POLYETHYLENE GLYCOL 3350
     Indication: Product used for unknown indication
     Dosage: UNK; FORMULATION: POWDER FOR SOLUTION ORAL
     Route: 065
  8. ACETAMINOPHEN\OXYCODONE HYDROCHLORIDE [Concomitant]
     Active Substance: ACETAMINOPHEN\OXYCODONE HYDROCHLORIDE
     Indication: Product used for unknown indication
     Dosage: UNK
     Route: 065
  9. AMITRIPTYLINE [Concomitant]
     Active Substance: AMITRIPTYLINE
     Indication: Product used for unknown indication
     Dosage: 50 MILLIGRAM, BID (2 EVERY 1 DAYS)
     Route: 048
  10. AMITRIPTYLINE [Concomitant]
     Active Substance: AMITRIPTYLINE
     Dosage: 125 MILLIGRAM, QD (1 EVERY 1 DAYS)
     Route: 048
  11. AMITRIPTYLINE [Concomitant]
     Active Substance: AMITRIPTYLINE
     Dosage: 1125 MILLIGRAM (2 EVERY 1 DAYS)
     Route: 048
  12. DILTIAZEM [Concomitant]
     Active Substance: DILTIAZEM
     Indication: Product used for unknown indication
     Dosage: UNK
     Route: 065
  13. DILTIAZEM [Concomitant]
     Active Substance: DILTIAZEM
     Dosage: 100 MILLIGRAM, QD (1 EVERY 1 DAYS)
     Route: 048
  14. LEVOTHYROXINE [Concomitant]
     Active Substance: LEVOTHYROXINE
     Indication: Product used for unknown indication
     Dosage: UNK
     Route: 048
  15. FLUOXETINE [Concomitant]
     Active Substance: FLUOXETINE HYDROCHLORIDE
     Indication: Product used for unknown indication
     Dosage: UNK
     Route: 065
  16. MORPHINE SULFATE [Concomitant]
     Active Substance: MORPHINE SULFATE
     Indication: Product used for unknown indication
     Dosage: 60 MILLIGRAM (1 EVERY 1 DAYS)
     Route: 048
  17. MORPHINE SULFATE [Concomitant]
     Active Substance: MORPHINE SULFATE
     Indication: Product used for unknown indication
     Dosage: 15 MILLIGRAM, BID
     Route: 065
  18. METOCLOPRAMIDE [Concomitant]
     Active Substance: METOCLOPRAMIDE
     Indication: Product used for unknown indication
     Dosage: UNK
     Route: 065
  19. MORPHINE [Concomitant]
     Active Substance: MORPHINE
     Indication: Product used for unknown indication
     Dosage: UNK
     Route: 065
  20. MORPHINE [Concomitant]
     Active Substance: MORPHINE
     Dosage: 15 MILLIGRAM
     Route: 048
  21. OXAZEPAM [Concomitant]
     Active Substance: OXAZEPAM
     Indication: Product used for unknown indication
     Dosage: UNK
     Route: 065
  22. OXAZEPAM [Concomitant]
     Active Substance: OXAZEPAM
     Dosage: UNK (1 EVERY 1 DAYS)
     Route: 065
  23. PROZAC [Concomitant]
     Active Substance: FLUOXETINE HYDROCHLORIDE
     Indication: Product used for unknown indication
     Dosage: UNK, QD (1 EVERY 1 DAYS)
     Route: 065
  24. PROZAC [Concomitant]
     Active Substance: FLUOXETINE HYDROCHLORIDE
     Dosage: UNK, QD (1 EVERY 1 DAYS)
     Route: 048
  25. RAMIPRIL [Concomitant]
     Active Substance: RAMIPRIL
     Indication: Product used for unknown indication
     Dosage: UNK
     Route: 065
  26. OXYCODONE HYDROCHLORIDE [Concomitant]
     Active Substance: OXYCODONE HYDROCHLORIDE
     Indication: Product used for unknown indication
     Dosage: UNK
     Route: 065

REACTIONS (45)
  - Abdominal discomfort [Unknown]
  - Blood pressure diastolic abnormal [Unknown]
  - Blood pressure fluctuation [Unknown]
  - Dehydration [Unknown]
  - Dysphonia [Unknown]
  - Ear discomfort [Unknown]
  - Wheezing [Unknown]
  - Gait inability [Unknown]
  - Hernia [Unknown]
  - Inflammation [Unknown]
  - Injection site pain [Unknown]
  - Muscle strain [Unknown]
  - Musculoskeletal stiffness [Unknown]
  - Restless legs syndrome [Unknown]
  - Sports injury [Unknown]
  - Urine abnormality [Unknown]
  - Oropharyngeal pain [Unknown]
  - Oxygen saturation decreased [Unknown]
  - Epistaxis [Unknown]
  - Joint swelling [Unknown]
  - Liver function test abnormal [Unknown]
  - Peripheral swelling [Unknown]
  - Rheumatoid arthritis [Unknown]
  - Weight decreased [Unknown]
  - Hyperhidrosis [Unknown]
  - Productive cough [Unknown]
  - Abdominal pain [Unknown]
  - Headache [Unknown]
  - Pain in extremity [Unknown]
  - Rash [Unknown]
  - Arthralgia [Unknown]
  - Blood pressure increased [Unknown]
  - Diarrhoea [Unknown]
  - Sinusitis [Unknown]
  - Gastric infection [Unknown]
  - Cough [Unknown]
  - Labyrinthitis [Unknown]
  - Dizziness [Unknown]
  - Fatigue [Unknown]
  - Nasopharyngitis [Unknown]
  - Nausea [Unknown]
  - Oedema peripheral [Unknown]
  - Pyrexia [Unknown]
  - Weight increased [Unknown]
  - Drug ineffective [Unknown]
